FAERS Safety Report 8417456-X (Version None)
Quarter: 2012Q2

REPORT INFORMATION
  Report Type: 
  Country: None (occurrence: None)
  Receive Date: 20120606
  Receipt Date: 20120530
  Transmission Date: 20120825
  Serious: Yes (Hospitalization)
  Sender: FDA-Public Use
  Company Number: PHHY2012FR046640

PATIENT
  Age: 70 Year
  Sex: Female

DRUGS (6)
  1. BISOPROLOL FUMARATE [Concomitant]
  2. LISINOPRIL [Concomitant]
  3. AMOXICILLIN AND CLAVULANATE POTASSIUM [Suspect]
     Indication: RESPIRATORY TRACT INFECTION
  4. FLUINDIONE [Suspect]
  5. WARFARIN SODIUM [Suspect]
     Dosage: 4 MG, UNK
  6. ASPIRIN [Concomitant]

REACTIONS (5)
  - SKIN LESION [None]
  - PURPURA [None]
  - SKIN NECROSIS [None]
  - PYREXIA [None]
  - BLISTER [None]
